FAERS Safety Report 8063274-4 (Version None)
Quarter: 2012Q1

REPORT INFORMATION
  Report Type: 
  Country: None (occurrence: None)
  Receive Date: 20120123
  Receipt Date: 20120109
  Transmission Date: 20120608
  Serious: Yes (Other)
  Sender: FDA-Public Use
  Company Number: PHHY2011DE111073

PATIENT
  Sex: Female
  Weight: 103 kg

DRUGS (12)
  1. AFINITOR [Suspect]
     Indication: RENAL CELL CARCINOMA
     Dosage: 10 MG, QD
     Route: 048
     Dates: start: 20100101, end: 20100101
  2. THEOPHYLLINE [Concomitant]
     Indication: CHRONIC OBSTRUCTIVE PULMONARY DISEASE
     Dosage: UNK UKN, UNK
     Route: 065
  3. BERODUAL [Concomitant]
     Indication: CHRONIC OBSTRUCTIVE PULMONARY DISEASE
     Dosage: UNK UKN, UNK
     Route: 065
  4. PANTOPRAZOLE [Concomitant]
     Dosage: UNK UKN, UNK
     Route: 065
  5. CANDESARTAN CILEXETIL [Concomitant]
     Dosage: UNK UKN, UNK
     Route: 065
  6. AFINITOR [Suspect]
     Dosage: 5 MG, QD
     Route: 048
     Dates: start: 20100301, end: 20111103
  7. LANTUS [Concomitant]
     Indication: DIABETES MELLITUS
     Dosage: UNK UKN, UNK
     Route: 058
  8. ALLOPURINOL [Concomitant]
     Dosage: UNK UKN, UNK
     Route: 065
  9. INSULIN [Concomitant]
     Indication: DIABETES MELLITUS
     Route: 058
  10. FLUTICASONE PROPIONATE/SALMETEROL [Concomitant]
     Indication: CHRONIC OBSTRUCTIVE PULMONARY DISEASE
     Dosage: UNK UKN, UNK
     Route: 065
  11. ACTRAPID [Concomitant]
     Indication: DIABETES MELLITUS
     Dosage: UNK UKN, UNK
     Route: 058
  12. PREDNISOLONE [Suspect]
     Dosage: 5 MG, UNK
     Route: 048
     Dates: start: 20070101

REACTIONS (8)
  - DIABETES MELLITUS [None]
  - LYMPHOEDEMA [None]
  - ASCITES [None]
  - GAIT DISTURBANCE [None]
  - DYSPNOEA [None]
  - WEIGHT INCREASED [None]
  - PAIN IN EXTREMITY [None]
  - DIABETES MELLITUS INADEQUATE CONTROL [None]
